FAERS Safety Report 21647727 (Version 2)
Quarter: 2023Q1

REPORT INFORMATION
  Report Type: Spontaneous
  Country: JP (occurrence: JP)
  Receive Date: 20221128
  Receipt Date: 20230118
  Transmission Date: 20230417
  Serious: Yes (Hospitalization, Other)
  Sender: FDA-Public Use
  Company Number: JP-ONO-2022JP031426

PATIENT
  Age: 81 Year
  Sex: Female

DRUGS (1)
  1. OPDIVO [Suspect]
     Active Substance: NIVOLUMAB
     Indication: Gastric cancer
     Dosage: UNK
     Route: 041

REACTIONS (3)
  - Fulminant type 1 diabetes mellitus [Recovering/Resolving]
  - Diabetic ketoacidosis [Recovering/Resolving]
  - Diarrhoea [Unknown]
